FAERS Safety Report 10801680 (Version 2)
Quarter: 2015Q2

REPORT INFORMATION
  Report Type: Spontaneous
  Country: AT (occurrence: AT)
  Receive Date: 20150217
  Receipt Date: 20150427
  Transmission Date: 20150821
  Serious: Yes (Other)
  Sender: FDA-Public Use
  Company Number: AT-JNJFOC-20150208177

PATIENT
  Sex: Male

DRUGS (6)
  1. LEXOTANIL [Concomitant]
     Active Substance: BROMAZEPAM
     Indication: MENTAL DISORDER
     Dosage: UP TO 2 PIECES DAILY
     Route: 065
  2. IMBRUVICA [Suspect]
     Active Substance: IBRUTINIB
     Indication: CHRONIC LYMPHOCYTIC LEUKAEMIA
  3. SEROQUEL [Concomitant]
     Active Substance: QUETIAPINE FUMARATE
     Indication: PSYCHOTHERAPY
     Dosage: 0-0-0-1
     Route: 065
  4. IMBRUVICA [Suspect]
     Active Substance: IBRUTINIB
     Indication: CHRONIC LYMPHOCYTIC LEUKAEMIA
     Dates: start: 20150124, end: 20150204
  5. SEROQUEL [Concomitant]
     Active Substance: QUETIAPINE FUMARATE
     Indication: PSYCHOTHERAPY
     Dosage: 0-0-0-1
     Route: 065
  6. NOZINAN [Concomitant]
     Active Substance: LEVOMEPROMAZINE
     Indication: MENTAL DISORDER
     Dosage: ALMOST DAILY
     Route: 065

REACTIONS (2)
  - Leukopenia [Not Recovered/Not Resolved]
  - Neutropenia [Unknown]
